FAERS Safety Report 15603927 (Version 1)
Quarter: 2018Q4

REPORT INFORMATION
  Report Type: Spontaneous
  Country: CA (occurrence: CA)
  Receive Date: 20181109
  Receipt Date: 20181109
  Transmission Date: 20190205
  Serious: Yes (Hospitalization)
  Sender: FDA-Public Use
  Company Number: CA-ACTELION-A-US2018-177925

PATIENT
  Age: 65 Year
  Sex: Male
  Weight: 65.76 kg

DRUGS (7)
  1. OPSUMIT [Suspect]
     Active Substance: MACITENTAN
     Indication: PULMONARY ARTERIAL HYPERTENSION
     Dosage: 10 MG, QD
     Route: 048
     Dates: start: 20160413
  2. NASONEX [Concomitant]
     Active Substance: MOMETASONE FUROATE
  3. WARFARIN [Concomitant]
     Active Substance: WARFARIN
  4. FUROSEMIDE. [Concomitant]
     Active Substance: FUROSEMIDE
  5. AMLODIPINE [Concomitant]
     Active Substance: AMLODIPINE BESYLATE
  6. CARBAMAZEPINE. [Concomitant]
     Active Substance: CARBAMAZEPINE
  7. ADEMPAS [Concomitant]
     Active Substance: RIOCIGUAT

REACTIONS (5)
  - Dyspnoea [Unknown]
  - Anaemia [Unknown]
  - Oedema peripheral [Unknown]
  - Hospitalisation [Not Recovered/Not Resolved]
  - Constipation [Unknown]

NARRATIVE: CASE EVENT DATE: 20180807
